FAERS Safety Report 5821364-8 (Version None)
Quarter: 2008Q3

REPORT INFORMATION
  Report Type: 
  Country: None (occurrence: None)
  Receive Date: 20080722
  Receipt Date: 20080722
  Transmission Date: 20090109
  Serious: Yes (Hospitalization)
  Sender: FDA-Public Use
  Company Number: None

PATIENT
  Age: 61 Year
  Sex: Female
  Weight: 111 kg

DRUGS (5)
  1. RITUXAN [Suspect]
     Indication: HODGKIN'S DISEASE
     Dosage: RITUXAN 375 MG/2 WKLY X 6 W
     Dates: start: 20080701, end: 20080714
  2. ADRIAMYCIN PFS [Suspect]
     Dosage: IV DAYS 1 AND 15
     Route: 042
     Dates: start: 20080714, end: 20080714
  3. BLENOXANE [Suspect]
     Dosage: IV DAYS 1 AND 15
     Route: 042
     Dates: start: 20080714, end: 20080714
  4. VELBAN [Suspect]
     Dosage: IV DAYS 1 AND 15
     Route: 042
     Dates: start: 20080714, end: 20080714
  5. DTIC-DOME [Suspect]
     Dosage: IV DAYS 1 AND 15
     Route: 042
     Dates: start: 20080714, end: 20080714

REACTIONS (4)
  - ABDOMINAL PAIN [None]
  - DIVERTICULITIS [None]
  - NAUSEA [None]
  - VOMITING [None]
